FAERS Safety Report 8425929-9 (Version None)
Quarter: 2012Q2

REPORT INFORMATION
  Report Type: 
  Country: None (occurrence: None)
  Receive Date: 20120604
  Receipt Date: 20120430
  Transmission Date: 20120825
  Serious: Yes (Hospitalization)
  Sender: FDA-Public Use
  Company Number: 7129157

PATIENT
  Age: 89 Year
  Sex: Male

DRUGS (9)
  1. ARIMIDEX (ANASTROZOLE)(COATED TABLET)(ANASTROZOLE) [Concomitant]
  2. SEROPLEX (ESCITALOPRAM OXALATE)(10 MG, COATED TABLET)(ESCITALOPRAM) [Concomitant]
  3. LEVOTHYROXINE SODIUM [Suspect]
     Indication: PRODUCT USED FOR UNKNOWN INDICATION
     Dosage: 1 DF (1 DF,1 IN 1 D)	ORAL
     Route: 048
     Dates: start: 20110902
  4. PREVISCAN (FLUINDIONE)(20 MG, TABLET)(FLUINDIONE [Concomitant]
  5. INEXIUM (ESOMEPRAZOLE MAGNESIUM)(20 MG, CASTRO-RESISTANT TABLET)(ESOME [Concomitant]
  6. CORDARONE (AMIODARONE HYDROCHLORIDE)(200 MG, TABLET)(AMIODARONE) [Concomitant]
  7. TRIATEC (RAMIPRIL)(2.5 MG, TABLET)(RAMIPRIL) [Concomitant]
  8. ZOCOR (SIMVASTATIN)(20 MG, COATED TABLET)(SIMVASTATIN) [Concomitant]
  9. XATRAL (ALFUZOSIN)(10 MG, MODIFIED-RELEASE TABLET)(ALFUZOSINE) [Concomitant]

REACTIONS (2)
  - CARDIAC FAILURE [None]
  - OEDEMA PERIPHERAL [None]
